FAERS Safety Report 6779727-2 (Version None)
Quarter: 2010Q2

REPORT INFORMATION
  Report Type: 
  Country: None (occurrence: None)
  Receive Date: 20100618
  Receipt Date: 20100610
  Transmission Date: 20101027
  Serious: Yes (Hospitalization)
  Sender: FDA-Public Use
  Company Number: US-ABBOTT-10P-163-0650691-00

PATIENT
  Sex: Female
  Weight: 67.192 kg

DRUGS (16)
  1. HUMIRA [Suspect]
     Indication: CROHN'S DISEASE
     Dates: start: 20090717, end: 20100422
  2. FOLIC ACID [Concomitant]
     Indication: DRUG USE FOR UNKNOWN INDICATION
     Route: 048
     Dates: start: 20090712, end: 20100422
  3. PROGESTERONE [Concomitant]
     Indication: PROPHYLAXIS
     Dates: start: 20090712, end: 20091011
  4. DELESTROGEN [Concomitant]
     Indication: PROPHYLAXIS
     Dates: start: 20090712, end: 20091011
  5. TYLENOL [Concomitant]
     Indication: HEADACHE
     Dosage: 2 PILLS - 2 TOTAL
     Dates: start: 20090712, end: 20090818
  6. BENADRYL [Concomitant]
     Indication: PROPHYLAXIS
     Route: 048
     Dates: start: 20090712, end: 20100422
  7. ZOFRAN [Concomitant]
     Indication: NAUSEA
     Route: 048
     Dates: start: 20090901, end: 20100101
  8. PERCOCET [Concomitant]
     Indication: PAIN
     Route: 048
     Dates: start: 20091208, end: 20091210
  9. PERCOCET [Concomitant]
     Indication: FISTULA
  10. CEFTIN [Concomitant]
     Indication: FISTULA
     Route: 042
     Dates: start: 20091207, end: 20091207
  11. ANESTHESIA ANY NOX [Concomitant]
     Indication: FISTULA
     Route: 042
     Dates: start: 20091207, end: 20091208
  12. FLU VACCINE NOS [Concomitant]
     Indication: INFLUENZA IMMUNISATION
     Dosage: 1 SHOT
     Dates: start: 20091202, end: 20091202
  13. H1N1 INFLENZA VACCINE NOS [Concomitant]
     Indication: INFLUENZA IMMUNISATION
     Dosage: 1 SHOT 1 DAY
     Dates: start: 20091215, end: 20091215
  14. IRON [Concomitant]
     Indication: DRUG USE FOR UNKNOWN INDICATION
     Route: 048
     Dates: start: 20100108, end: 20100422
  15. TUMS [Concomitant]
     Indication: DYSPEPSIA
     Route: 048
     Dates: start: 20090915, end: 20100422
  16. NEXIUM [Concomitant]
     Indication: DYSPEPSIA
     Route: 048
     Dates: start: 20100315, end: 20100422

REACTIONS (6)
  - DYSPEPSIA [None]
  - FISTULA [None]
  - NAUSEA [None]
  - NEPHROLITHIASIS [None]
  - PAIN [None]
  - ROAD TRAFFIC ACCIDENT [None]
